FAERS Safety Report 4489082-9 (Version None)
Quarter: 2004Q4

REPORT INFORMATION
  Report Type: 
  Country: None (occurrence: None)
  Receive Date: 20041029
  Receipt Date: 20040907
  Transmission Date: 20050328
  Serious: Yes (Other)
  Sender: FDA-Public Use
  Company Number: US-ROCHE-379892

PATIENT
  Sex: Female

DRUGS (2)
  1. XENICAL [Suspect]
     Indication: OBESITY
     Dosage: THERAPY BEFORE GALLBLADDER SURGERY.
     Route: 048
  2. XENICAL [Suspect]
     Dosage: THERAPY AFTER GALLBLADDER SURGERY.
     Route: 048

REACTIONS (2)
  - GALLBLADDER OPERATION [None]
  - WEIGHT LOSS POOR [None]
